FAERS Safety Report 5910780-1 (Version None)
Quarter: 2008Q4

REPORT INFORMATION
  Report Type: 
  Country: None (occurrence: None)
  Receive Date: 20081007
  Receipt Date: 20080429
  Transmission Date: 20090506
  Serious: No
  Sender: FDA-Public Use
  Company Number: US-ASTRAZENECA-2008UW08753

PATIENT
  Age: 59 Year
  Sex: Female

DRUGS (8)
  1. ARIMIDEX [Suspect]
     Indication: BREAST CANCER
     Route: 048
     Dates: start: 20061201
  2. PROTONIX [Concomitant]
  3. PRAVACHOL [Concomitant]
  4. TRIAVIL [Concomitant]
     Dosage: 2/10
  5. EFFEXOR [Concomitant]
  6. CENTRUM [Concomitant]
  7. CALTRATE [Concomitant]
  8. CROMIUM PICLINATE [Concomitant]

REACTIONS (4)
  - ALOPECIA [None]
  - HOT FLUSH [None]
  - MADAROSIS [None]
  - MUSCULOSKELETAL STIFFNESS [None]
